FAERS Safety Report 7555109-0 (Version None)
Quarter: 2011Q2

REPORT INFORMATION
  Report Type: 
  Country: None (occurrence: None)
  Receive Date: 20110617
  Receipt Date: 20110608
  Transmission Date: 20111010
  Serious: Yes (Other)
  Sender: FDA-Public Use
  Company Number: DE-UCBSA-034140

PATIENT
  Sex: Male
  Weight: 47.9 kg

DRUGS (2)
  1. LAMOTRIGINE [Suspect]
     Dosage: UNKNOWN DOSE
  2. KEPPRA [Suspect]
     Indication: EPILEPSY
     Route: 048
     Dates: start: 20101220, end: 20101222

REACTIONS (1)
  - PETIT MAL EPILEPSY [None]
